FAERS Safety Report 5795063-5 (Version None)
Quarter: 2008Q2

REPORT INFORMATION
  Report Type: 
  Country: None (occurrence: None)
  Receive Date: 20080630
  Receipt Date: 20080324
  Transmission Date: 20081010
  Serious: No
  Sender: FDA-Public Use
  Company Number: US-BRISTOL-MYERS SQUIBB COMPANY-14124119

PATIENT
  Age: 29 Year
  Sex: Female
  Weight: 82 kg

DRUGS (3)
  1. ORENCIA [Suspect]
     Indication: RHEUMATOID ARTHRITIS
     Dosage: SECOND INFUSION ON 21-MAR-2008
     Dates: start: 20080101
  2. LASIX [Concomitant]
  3. VITAMIN B-12 [Concomitant]

REACTIONS (1)
  - FATIGUE [None]
